FAERS Safety Report 19144213 (Version 1)
Quarter: 2021Q2

REPORT INFORMATION
  Report Type: Spontaneous
  Country: CA (occurrence: CA)
  Receive Date: 20210416
  Receipt Date: 20210416
  Transmission Date: 20210717
  Serious: Yes (Other)
  Sender: FDA-Public Use
  Company Number: CA-TEVA-2021-CA-1900557

PATIENT
  Age: 35 Year
  Sex: Male

DRUGS (14)
  1. METHOTRIMEPRAZINE [Suspect]
     Active Substance: LEVOMEPROMAZINE
     Indication: POOR QUALITY SLEEP
     Route: 065
  2. CLONAZEPAM. [Suspect]
     Active Substance: CLONAZEPAM
     Indication: POOR QUALITY SLEEP
     Route: 065
  3. ZOPICLONE [Interacting]
     Active Substance: ZOPICLONE
     Indication: POOR QUALITY SLEEP
     Route: 064
  4. LORAZEPAM. [Concomitant]
     Active Substance: LORAZEPAM
     Route: 065
  5. VORTIOXETINE. [Concomitant]
     Active Substance: VORTIOXETINE
     Indication: ANTIDEPRESSANT THERAPY
     Dosage: 10 MILLIGRAM DAILY;
     Route: 048
  6. ARIPIPRAZOLE. [Suspect]
     Active Substance: ARIPIPRAZOLE
     Indication: PSYCHOTIC DISORDER
     Route: 030
  7. OXAZEPAM. [Suspect]
     Active Substance: OXAZEPAM
     Indication: POOR QUALITY SLEEP
     Route: 065
  8. CLONAZEPAM. [Interacting]
     Active Substance: CLONAZEPAM
     Indication: DYSTONIA
  9. ARIPIPRAZOLE. [Interacting]
     Active Substance: ARIPIPRAZOLE
     Indication: PSYCHOTIC DISORDER
     Route: 065
  10. TEMAZEPAM. [Suspect]
     Active Substance: TEMAZEPAM
     Indication: POOR QUALITY SLEEP
     Route: 065
  11. LEVOMEPROMAZINE [Suspect]
     Active Substance: LEVOMEPROMAZINE
     Indication: POOR QUALITY SLEEP
     Route: 065
  12. LITHIUM CARBONATE. [Suspect]
     Active Substance: LITHIUM CARBONATE
     Indication: AFFECTIVE DISORDER
     Dosage: 900 MILLIGRAM DAILY;
     Route: 048
  13. QUETIAPINE. [Interacting]
     Active Substance: QUETIAPINE
     Indication: POOR QUALITY SLEEP
     Route: 048
  14. BENZTROPINE. [Suspect]
     Active Substance: BENZTROPINE
     Indication: DYSTONIA
     Route: 065

REACTIONS (6)
  - Dystonia [Unknown]
  - Therapeutic product effect incomplete [Unknown]
  - Dystonic tremor [Unknown]
  - Drug ineffective [Unknown]
  - Restlessness [Unknown]
  - Drug interaction [Unknown]
